FAERS Safety Report 26102770 (Version 1)
Quarter: 2025Q4

REPORT INFORMATION
  Report Type: Spontaneous
  Country: EU (occurrence: EU)
  Receive Date: 20251128
  Receipt Date: 20251128
  Transmission Date: 20260118
  Serious: Yes (Other)
  Sender: MERCK SHARP & DOHME LLC
  Company Number: EU-009507513-2353755

PATIENT
  Age: 55 Year
  Sex: Female

DRUGS (1)
  1. DELSTRIGO [Suspect]
     Active Substance: DORAVIRINE\LAMIVUDINE\TENOFOVIR DISOPROXIL FUMARATE
     Dates: start: 20191119

REACTIONS (4)
  - Nervous system disorder [Unknown]
  - Viral mutation identified [Unknown]
  - CSF virus identified [Unknown]
  - Viral load abnormal [Unknown]

NARRATIVE: CASE EVENT DATE: 20250903
